FAERS Safety Report 7879660-9 (Version None)
Quarter: 2011Q4

REPORT INFORMATION
  Report Type: 
  Country: None (occurrence: None)
  Receive Date: 20111101
  Receipt Date: 20111023
  Transmission Date: 20120403
  Serious: Yes (Death, Life-Threatening, Hospitalization)
  Sender: FDA-Public Use
  Company Number: MY-GLAXOSMITHKLINE-B0750874A

PATIENT
  Sex: Female
  Weight: 62 kg

DRUGS (3)
  1. PREDNISONE [Concomitant]
     Dosage: 5MG PER DAY
  2. ELTROMBOPAG [Suspect]
     Indication: IDIOPATHIC THROMBOCYTOPENIC PURPURA
     Route: 065
     Dates: start: 20110826, end: 20110909
  3. CYCLOSPORINE [Concomitant]
     Dosage: 100MG TWICE PER DAY

REACTIONS (1)
  - HAEMORRHAGE INTRACRANIAL [None]
